FAERS Safety Report 15475442 (Version 2)
Quarter: 2018Q4

REPORT INFORMATION
  Report Type: Spontaneous
  Country: US (occurrence: US)
  Receive Date: 20181008
  Receipt Date: 20181203
  Transmission Date: 20190205
  Serious: No
  Sender: FDA-Public Use
  Company Number: US-009507513-1810USA002860

PATIENT
  Age: 31 Year
  Sex: Female
  Weight: 100 kg

DRUGS (3)
  1. IBUPROFEN. [Concomitant]
     Active Substance: IBUPROFEN
  2. NEXPLANON [Suspect]
     Active Substance: ETONOGESTREL
     Dosage: 1 UNK
     Dates: start: 20181010
  3. NEXPLANON [Suspect]
     Active Substance: ETONOGESTREL
     Indication: CONTRACEPTION
     Dosage: 1 DF, 3 YEARS, LEFT ARM
     Route: 059
     Dates: start: 20150831, end: 20181010

REACTIONS (3)
  - Incorrect product administration duration [Unknown]
  - Circumstance or information capable of leading to medication error [Unknown]
  - Implant site rash [Not Recovered/Not Resolved]

NARRATIVE: CASE EVENT DATE: 20180831
